FAERS Safety Report 21999644 (Version 1)
Quarter: 2023Q1

REPORT INFORMATION
  Report Type: Spontaneous
  Country: US (occurrence: None)
  Receive Date: 20230216
  Receipt Date: 20230216
  Transmission Date: 20230418
  Serious: No
  Sender: FDA-Public Use
  Company Number: 2023A033791

PATIENT
  Age: 836 Month
  Sex: Female

DRUGS (3)
  1. FASENRA [Suspect]
     Active Substance: BENRALIZUMAB
     Indication: Asthma
     Route: 058
     Dates: end: 202206
  2. METFORMIN [Concomitant]
     Active Substance: METFORMIN HYDROCHLORIDE
  3. XOLAIR [Concomitant]
     Active Substance: OMALIZUMAB

REACTIONS (9)
  - Nasopharyngitis [Unknown]
  - Asthma [Unknown]
  - Malaise [Unknown]
  - Dermatitis atopic [Unknown]
  - Back injury [Unknown]
  - Glucose tolerance impaired [Unknown]
  - Hypertension [Unknown]
  - Pain [Unknown]
  - Insurance issue [Unknown]

NARRATIVE: CASE EVENT DATE: 20220601
